FAERS Safety Report 10232970 (Version 1)
Quarter: 2014Q2

REPORT INFORMATION
  Report Type: Spontaneous
  Country: US (occurrence: US)
  Receive Date: 20140612
  Receipt Date: 20140612
  Transmission Date: 20141212
  Serious: Yes (Hospitalization, Other)
  Sender: FDA-Public Use
  Company Number: 2014SP001761

PATIENT
  Sex: Male

DRUGS (1)
  1. LATUDA [Suspect]
     Route: 048
     Dates: start: 2014

REACTIONS (1)
  - Pancytopenia [Unknown]
